FAERS Safety Report 6377351-7 (Version None)
Quarter: 2009Q3

REPORT INFORMATION
  Report Type: 
  Country: None (occurrence: None)
  Receive Date: 20090923
  Receipt Date: 20090923
  Transmission Date: 20100115
  Serious: No
  Sender: FDA-Public Use
  Company Number: None

PATIENT
  Age: 25 Year
  Sex: Female
  Weight: 80.9 kg

DRUGS (10)
  1. WARFARIN [Suspect]
     Indication: THROMBOSIS PROPHYLAXIS
     Dosage: 6MG PO DAILY
     Route: 048
  2. HEPARIN [Concomitant]
  3. ACETAMINOPHEN [Concomitant]
  4. AZITHROMYCIN [Concomitant]
  5. BUPROPION HCL [Concomitant]
  6. ETHACRYNIC ACID [Concomitant]
  7. LORAZEPAM [Concomitant]
  8. PERCOCET [Concomitant]
  9. HYDROMORPHONE [Concomitant]
  10. LANSOPRAZOLE [Concomitant]

REACTIONS (6)
  - ABDOMINAL PAIN [None]
  - DYSPNOEA [None]
  - HAEMOPTYSIS [None]
  - HYPOXIA [None]
  - INTERNATIONAL NORMALISED RATIO INCREASED [None]
  - PELVIC INFECTION [None]
